FAERS Safety Report 22520417 (Version 1)
Quarter: 2023Q2

REPORT INFORMATION
  Report Type: Spontaneous
  Country: US (occurrence: None)
  Receive Date: 20230602
  Receipt Date: 20230602
  Transmission Date: 20230721
  Serious: Yes (Hospitalization)
  Sender: FDA-Public Use
  Company Number: None

PATIENT
  Sex: Male

DRUGS (2)
  1. FULPHILA [Suspect]
     Active Substance: PEGFILGRASTIM-JMDB
     Indication: Renal cancer
     Dosage: DAY 4 OF EVERY 21 DAYS?
     Route: 058
     Dates: start: 202302
  2. CINVANTI [Suspect]
     Active Substance: APREPITANT
     Dosage: DAY 1 OF 21 DAYS?
     Route: 042
     Dates: start: 202302

REACTIONS (1)
  - Adverse drug reaction [None]
